FAERS Safety Report 16011907 (Version 1)
Quarter: 2019Q1

REPORT INFORMATION
  Report Type: Report from Study
  Country: CO (occurrence: CO)
  Receive Date: 20190227
  Receipt Date: 20190227
  Transmission Date: 20190418
  Serious: Yes (Hospitalization, Other)
  Sender: FDA-Public Use
  Company Number: CO-ROCHE-1616539

PATIENT
  Sex: Male

DRUGS (2)
  1. VALGANCICLOVIR. [Suspect]
     Active Substance: VALGANCICLOVIR
     Indication: CYTOMEGALOVIRUS INFECTION
     Dosage: DAILY
     Route: 048
  2. MYCOPHENOLATE MOFETIL. [Suspect]
     Active Substance: MYCOPHENOLATE MOFETIL
     Indication: LIVER TRANSPLANT
     Route: 048
     Dates: start: 20090904

REACTIONS (3)
  - Transplant rejection [Unknown]
  - Cytomegalovirus infection [Recovered/Resolved]
  - Dizziness [Unknown]
